FAERS Safety Report 17814271 (Version 2)
Quarter: 2020Q3

REPORT INFORMATION
  Report Type: Spontaneous
  Country: JP (occurrence: JP)
  Receive Date: 20200521
  Receipt Date: 20200716
  Transmission Date: 20201102
  Serious: Yes (Death)
  Sender: FDA-Public Use
  Company Number: JP-BIOGEN-2020BI00876449

PATIENT
  Sex: Female
  Weight: 56 kg

DRUGS (3)
  1. TYSABRI [Suspect]
     Active Substance: NATALIZUMAB
     Indication: RELAPSING-REMITTING MULTIPLE SCLEROSIS
     Route: 041
     Dates: start: 20100420, end: 201406
  2. TYSABRI [Suspect]
     Active Substance: NATALIZUMAB
     Route: 041
     Dates: start: 20140730, end: 20150527
  3. URSO [Concomitant]
     Active Substance: URSODIOL
     Route: 048

REACTIONS (2)
  - Liver disorder [Fatal]
  - Liver transplant rejection [Fatal]
